FAERS Safety Report 15478184 (Version 1)
Quarter: 2018Q4

REPORT INFORMATION
  Report Type: Spontaneous
  Country: GB (occurrence: GB)
  Receive Date: 20181009
  Receipt Date: 20181009
  Transmission Date: 20190205
  Serious: Yes (Life-Threatening, Other)
  Sender: FDA-Public Use
  Company Number: GB-TORRENT-00003424

PATIENT
  Age: 23 Year
  Sex: Male
  Weight: 88 kg

DRUGS (5)
  1. OLANZAPINE. [Suspect]
     Active Substance: OLANZAPINE
     Indication: SLEEP DISORDER
     Dosage: UNKNOWN
  2. CLONAZEPAM. [Suspect]
     Active Substance: CLONAZEPAM
     Indication: ANXIETY
     Dosage: RARELY USED.
  3. SERTRALINE [Concomitant]
     Active Substance: SERTRALINE HYDROCHLORIDE
     Indication: PRODUCT USED FOR UNKNOWN INDICATION
     Dosage: UNKNOWN
  4. PREGABALIN. [Suspect]
     Active Substance: PREGABALIN
     Indication: ANXIETY DISORDER
     Dosage: 100MG IN THE MORNING 200MG IN THE EVENING
     Route: 048
     Dates: start: 20131201
  5. PROPRANOLOL HYDROCHLORIDE. [Suspect]
     Active Substance: PROPRANOLOL HYDROCHLORIDE
     Indication: PRODUCT USED FOR UNKNOWN INDICATION
     Dosage: UNKNOWN

REACTIONS (16)
  - Angioedema [Recovering/Resolving]
  - Abdominal pain [Recovered/Resolved]
  - Speech disorder [Not Recovered/Not Resolved]
  - Medication error [Unknown]
  - Fluid retention [Recovered/Resolved]
  - Paraesthesia [Recovered/Resolved]
  - Dyspnoea [Recovered/Resolved]
  - Depressed level of consciousness [Recovered/Resolved]
  - Disturbance in attention [Recovered/Resolved]
  - Sleep apnoea syndrome [Recovering/Resolving]
  - Asthenia [Recovered/Resolved]
  - Photosensitivity reaction [Recovered/Resolved]
  - Chest discomfort [Recovered/Resolved]
  - Memory impairment [Not Recovered/Not Resolved]
  - Amnesia [Recovered/Resolved]
  - Drug interaction [Unknown]

NARRATIVE: CASE EVENT DATE: 20131201
